FAERS Safety Report 16834645 (Version 2)
Quarter: 2019Q4

REPORT INFORMATION
  Report Type: Other
  Country: US (occurrence: US)
  Receive Date: 20190920
  Receipt Date: 20191113
  Transmission Date: 20200122
  Serious: Yes (Hospitalization, Other)
  Sender: FDA-Public Use
  Company Number: US-AMAG PHARMACEUTICALS, INC.-AMAG201904761

PATIENT
  Age: 35 Year
  Sex: Female

DRUGS (3)
  1. ASPIRIN. [Concomitant]
     Active Substance: ASPIRIN
     Indication: PREGNANCY WITH ADVANCED MATERNAL AGE
  2. MAKENA [Suspect]
     Active Substance: HYDROXYPROGESTERONE CAPROATE
     Indication: PREMATURE DELIVERY
     Dosage: 250MG/ML, WEEKLY
     Route: 058
     Dates: start: 20190520, end: 20190911
  3. PRENATAL VITAMINS [Concomitant]
     Active Substance: VITAMINS
     Indication: PREGNANCY

REACTIONS (4)
  - Premature delivery [Recovered/Resolved]
  - Pre-eclampsia [Unknown]
  - Product dose omission [Unknown]
  - Induced labour [Recovered/Resolved]

NARRATIVE: CASE EVENT DATE: 201907
